FAERS Safety Report 10723690 (Version 2)
Quarter: 2015Q1

REPORT INFORMATION
  Report Type: Spontaneous
  Country: FR (occurrence: None)
  Receive Date: 20150115
  Receipt Date: 20150130
  Transmission Date: 20150721
  Serious: Yes (Other)
  Sender: FDA-Public Use
  Company Number: 8004177

PATIENT
  Sex: Female

DRUGS (3)
  1. RHOPHYLAC [Suspect]
     Active Substance: HUMAN RHO(D) IMMUNE GLOBULIN
     Indication: PRODUCT USED FOR UNKNOWN INDICATION
     Dosage: ADMINISTERED AT 29 WEEK OF PREGNANCY
     Dates: start: 20140608, end: 20140608
  2. LEVOTHYROX (LEVOTHYROXINE SODIUM) (LEVOTHYROXINE SODIUM) [Suspect]
     Active Substance: LEVOTHYROXINE SODIUM
     Indication: HYPOTHYROIDISM
     Dates: end: 20140808
  3. SERTRALINE [Suspect]
     Active Substance: SERTRALINE HYDROCHLORIDE
     Indication: DEPRESSION
     Dosage: 25 MG (25 MG, 1 IN 1 D)
     Dates: start: 2004, end: 20140808

REACTIONS (3)
  - Beta haemolytic streptococcal infection [None]
  - Pre-eclampsia [None]
  - Maternal exposure during pregnancy [None]

NARRATIVE: CASE EVENT DATE: 20140808
